FAERS Safety Report 13415804 (Version 3)
Quarter: 2017Q3

REPORT INFORMATION
  Report Type: Spontaneous
  Country: US (occurrence: US)
  Receive Date: 20170406
  Receipt Date: 20170922
  Transmission Date: 20171127
  Serious: Yes (Death, Hospitalization)
  Sender: FDA-Public Use
  Company Number: US-JNJFOC-20170402299

PATIENT
  Age: 60 Year
  Sex: Female

DRUGS (4)
  1. XARELTO [Suspect]
     Active Substance: RIVAROXABAN
     Indication: PULMONARY EMBOLISM
     Route: 048
     Dates: start: 20150316, end: 201504
  2. ASPIRIN. [Suspect]
     Active Substance: ASPIRIN
     Indication: HIP SURGERY
     Route: 065
     Dates: start: 201501, end: 201503
  3. XARELTO [Suspect]
     Active Substance: RIVAROXABAN
     Indication: PULMONARY EMBOLISM
     Route: 048
     Dates: start: 201501
  4. ASPIRIN. [Suspect]
     Active Substance: ASPIRIN
     Indication: THROMBOSIS PROPHYLAXIS
     Route: 065
     Dates: start: 201501, end: 201503

REACTIONS (2)
  - Gastrointestinal haemorrhage [Fatal]
  - Haematemesis [Recovering/Resolving]

NARRATIVE: CASE EVENT DATE: 20150326
